FAERS Safety Report 6991958-5 (Version None)
Quarter: 2010Q3

REPORT INFORMATION
  Report Type: 
  Country: None (occurrence: None)
  Receive Date: 20100917
  Receipt Date: 20100908
  Transmission Date: 20110219
  Serious: Yes (Hospitalization)
  Sender: FDA-Public Use
  Company Number: US-US-EMD SERONO, INC.-232168J08USA

PATIENT
  Sex: Female
  Weight: 113 kg

DRUGS (12)
  1. REBIF [Suspect]
     Indication: RELAPSING-REMITTING MULTIPLE SCLEROSIS
     Route: 058
  2. REBIF [Suspect]
     Route: 058
     Dates: start: 20070409, end: 20090301
  3. REBIF [Suspect]
     Route: 058
     Dates: start: 20100301
  4. XOPENEX [Concomitant]
     Indication: BRONCHITIS CHRONIC
     Route: 055
     Dates: start: 20030101
  5. ADVAIR DISKUS 100/50 [Concomitant]
     Indication: BRONCHITIS CHRONIC
     Route: 055
     Dates: start: 20060101
  6. ZOLOFT [Concomitant]
     Indication: DEPRESSION
     Dates: start: 19950101
  7. LYRICA [Concomitant]
     Indication: FIBROMYALGIA
     Dates: start: 20060101
  8. NEXIUM [Concomitant]
     Indication: OESOPHAGEAL DISORDER
     Route: 065
     Dates: start: 20030101
  9. VESICARE [Concomitant]
     Indication: BLADDER DISORDER
     Route: 065
     Dates: start: 20030101
  10. CLONAZEPAM [Concomitant]
     Indication: DEPRESSION
     Route: 065
     Dates: start: 20000101
  11. TOPAMAX [Concomitant]
     Indication: PARAESTHESIA
     Dates: start: 20050101
  12. CYMBALTA [Concomitant]
     Indication: DEPRESSION

REACTIONS (11)
  - AMNESIA [None]
  - ANXIETY [None]
  - APHASIA [None]
  - CHRONIC OBSTRUCTIVE PULMONARY DISEASE [None]
  - CONTUSION [None]
  - FATIGUE [None]
  - INJECTION SITE REACTION [None]
  - MENOPAUSE [None]
  - MOOD ALTERED [None]
  - PULMONARY EMBOLISM [None]
  - SCIATICA [None]
